FAERS Safety Report 7662299-8 (Version None)
Quarter: 2011Q3

REPORT INFORMATION
  Report Type: 
  Country: None (occurrence: None)
  Receive Date: 20110805
  Receipt Date: 20101221
  Transmission Date: 20111222
  Serious: No
  Sender: FDA-Public Use
  Company Number: US-ABBOTT-10P-163-0693769-00

PATIENT
  Sex: Male
  Weight: 90.8 kg

DRUGS (6)
  1. NIASPAN [Suspect]
     Indication: PRODUCT USED FOR UNKNOWN INDICATION
     Dates: start: 20101201
  2. FELODIPINE [Concomitant]
     Indication: HYPERTENSION
  3. JANUMET [Suspect]
     Indication: DIABETES MELLITUS
     Dates: start: 20101201
  4. ALLOPURINOL [Concomitant]
     Indication: NEPHROLITHIASIS
  5. LOVAZA [Concomitant]
     Indication: BLOOD CHOLESTEROL INCREASED
  6. DIOVAN HCT [Concomitant]
     Indication: HYPERTENSION

REACTIONS (3)
  - BLOOD PRESSURE INCREASED [None]
  - HEADACHE [None]
  - SINUS HEADACHE [None]
